FAERS Safety Report 8310446-7 (Version None)
Quarter: 2012Q2

REPORT INFORMATION
  Report Type: 
  Country: None (occurrence: None)
  Receive Date: 20120425
  Receipt Date: 20120420
  Transmission Date: 20120825
  Serious: Yes (Other)
  Sender: FDA-Public Use
  Company Number: US-FRI-1000029374

PATIENT
  Sex: Male

DRUGS (8)
  1. CLONAZEPAM [Concomitant]
     Indication: ANXIETY
     Dosage: 5 MG
     Dates: start: 20111212, end: 20111219
  2. NAMENDA [Concomitant]
     Indication: HEADACHE
  3. B SUPER COMPLEX [Concomitant]
  4. VIIBRYD [Suspect]
     Indication: DEPRESSION
     Dosage: 10 MG
     Route: 048
     Dates: start: 20111202
  5. VIIBRYD [Suspect]
     Dosage: 20 MG
     Route: 048
  6. GINKGO [Concomitant]
  7. LIPOFLAVINOIDS [Concomitant]
  8. VIIBRYD [Suspect]
     Dosage: 40 MG
     Route: 048
     Dates: end: 20111230

REACTIONS (1)
  - NO ADVERSE EVENT [None]
